FAERS Safety Report 9028720 (Version 1)
Quarter: 2013Q1

REPORT INFORMATION
  Report Type: Report from Study
  Country: US (occurrence: US)
  Receive Date: 20130124
  Receipt Date: 20130124
  Transmission Date: 20140127
  Serious: Yes (Other)
  Sender: FDA-Public Use
  Company Number: US-BAYER-2012-134512

PATIENT
  Age: 85 Year
  Sex: Male

DRUGS (1)
  1. STIVARGA [Suspect]
     Indication: COLON CANCER
     Dosage: 120 MG, QD (3 TABLETS DAILY)
     Route: 048
     Dates: start: 20121213, end: 20121226

REACTIONS (9)
  - Gastrointestinal inflammation [Recovering/Resolving]
  - Eye inflammation [Recovering/Resolving]
  - Weight decreased [Not Recovered/Not Resolved]
  - Incorrect dose administered [None]
  - Rash [Recovering/Resolving]
  - Pruritus [Recovering/Resolving]
  - Skin lesion [Recovering/Resolving]
  - Dysphonia [Recovering/Resolving]
  - Constipation [Recovering/Resolving]
